FAERS Safety Report 6787503-X (Version None)
Quarter: 2010Q2

REPORT INFORMATION
  Report Type: 
  Country: None (occurrence: None)
  Receive Date: 20100623
  Receipt Date: 20090107
  Transmission Date: 20101027
  Serious: Yes (Other)
  Sender: FDA-Public Use
  Company Number: US-PFIZER INC-2006114343

PATIENT
  Age: 22 Year
  Sex: Female
  Weight: 67.574 kg

DRUGS (2)
  1. DEPO-PROVERA [Suspect]
     Indication: CONTRACEPTION
     Dosage: 1ST INJ., EVERY 12-13 WEEKS
     Dates: start: 20050811, end: 20050811
  2. DEPO-PROVERA [Suspect]
     Dosage: LAST INJECTION
     Dates: start: 20060801, end: 20060801

REACTIONS (1)
  - UNINTENDED PREGNANCY [None]
